FAERS Safety Report 8198709-X (Version None)
Quarter: 2012Q1

REPORT INFORMATION
  Report Type: 
  Country: None (occurrence: None)
  Receive Date: 20120309
  Receipt Date: 20120216
  Transmission Date: 20120608
  Serious: No
  Sender: FDA-Public Use
  Company Number: US-ELI_LILLY_AND_COMPANY-US201202005131

PATIENT
  Sex: Male

DRUGS (2)
  1. LETAIRIS [Concomitant]
     Indication: PULMONARY HYPERTENSION
     Dosage: 10 MG, UNK
     Route: 048
     Dates: start: 20120131, end: 20120202
  2. ADCIRCA [Suspect]
     Dosage: 1 DF, UNK

REACTIONS (7)
  - CHROMATURIA [None]
  - EPISTAXIS [None]
  - INSOMNIA [None]
  - PALPITATIONS [None]
  - HEADACHE [None]
  - VISUAL IMPAIRMENT [None]
  - FATIGUE [None]
